APPROVED DRUG PRODUCT: RISPERIDONE
Active Ingredient: RISPERIDONE
Strength: 0.5MG
Dosage Form/Route: TABLET, ORALLY DISINTEGRATING;ORAL
Application: A077494 | Product #002 | TE Code: AB
Applicant: PH HEALTH LTD
Approved: Apr 30, 2009 | RLD: No | RS: No | Type: RX